FAERS Safety Report 8625566-7 (Version None)
Quarter: 2012Q3

REPORT INFORMATION
  Report Type: 
  Country: None (occurrence: None)
  Receive Date: 20120827
  Receipt Date: 20120820
  Transmission Date: 20120928
  Serious: Yes (Disabling)
  Sender: FDA-Public Use
  Company Number: MX-ROCHE-1104790

PATIENT
  Sex: Female
  Weight: 43 kg

DRUGS (1)
  1. XELODA [Suspect]
     Indication: GASTRIC CANCER
     Route: 048
     Dates: start: 20120531

REACTIONS (7)
  - DIARRHOEA [None]
  - VOMITING [None]
  - OEDEMA PERIPHERAL [None]
  - MONOPLEGIA [None]
  - NAUSEA [None]
  - THROMBOSIS [None]
  - HEADACHE [None]
